FAERS Safety Report 21394671 (Version 1)
Quarter: 2022Q3

REPORT INFORMATION
  Report Type: Spontaneous
  Country: EG (occurrence: EG)
  Receive Date: 20220930
  Receipt Date: 20220930
  Transmission Date: 20221027
  Serious: Yes (Other)
  Sender: FDA-Public Use
  Company Number: EG-SUN PHARMACEUTICAL INDUSTRIES LTD-2022R1-356996

PATIENT
  Age: 3 Year
  Sex: Male

DRUGS (4)
  1. CAPTOPRIL [Suspect]
     Active Substance: CAPTOPRIL
     Indication: Cardiac failure
     Dosage: UNK
     Route: 065
  2. FUROSEMIDE [Suspect]
     Active Substance: FUROSEMIDE
     Indication: Cardiac failure
     Dosage: UNK
     Route: 048
  3. METHYLPREDNISOLONE [Suspect]
     Active Substance: METHYLPREDNISOLONE
     Indication: Vascular neoplasm
     Dosage: 3 MILLIGRAM/KILOGRAM, DAILY
     Route: 065
  4. VINCRISTINE [Suspect]
     Active Substance: VINCRISTINE
     Indication: Vascular neoplasm
     Dosage: 1.5 MILLIGRAM/SQ. METER, WEEKLY
     Route: 065

REACTIONS (1)
  - Condition aggravated [Unknown]
